FAERS Safety Report 5026776-0 (Version None)
Quarter: 2006Q2

REPORT INFORMATION
  Report Type: 
  Country: None (occurrence: None)
  Receive Date: 20060608
  Receipt Date: 20060530
  Transmission Date: 20061013
  Serious: Yes (Other)
  Sender: FDA-Public Use
  Company Number: 2006069263

PATIENT
  Age: 20 Year
  Sex: Female
  Weight: 40.8237 kg

DRUGS (1)
  1. UNISOM [Suspect]
     Dosage: 8 SLEEPGELS ONCE, ORAL
     Route: 048
     Dates: start: 20060530, end: 20060530

REACTIONS (2)
  - INCORRECT DOSE ADMINISTERED [None]
  - SOMNOLENCE [None]
